FAERS Safety Report 22298351 (Version 2)
Quarter: 2023Q2

REPORT INFORMATION
  Report Type: Report from Study
  Country: GB (occurrence: GB)
  Receive Date: 20230509
  Receipt Date: 20230525
  Transmission Date: 20230721
  Serious: Yes (Disabling, Other)
  Sender: FDA-Public Use
  Company Number: None

PATIENT
  Age: 65 Year
  Sex: Female
  Weight: 61 kg

DRUGS (2)
  1. QUETIAPINE [Suspect]
     Active Substance: QUETIAPINE
     Indication: Adverse drug reaction
     Dosage: 25MG TWICE A DAY THEN SLOW RELEASE 50MG; ;
     Route: 065
     Dates: start: 20221006, end: 20230116
  2. FEXOFENADINE [Concomitant]
     Active Substance: FEXOFENADINE HYDROCHLORIDE
     Indication: Product used for unknown indication
     Dosage: UNK
     Route: 065

REACTIONS (7)
  - Medication error [Unknown]
  - Headache [Recovered/Resolved]
  - Diplopia [Unknown]
  - Feeling abnormal [Unknown]
  - Nausea [Unknown]
  - Eye pain [Unknown]
  - Rash erythematous [Unknown]

NARRATIVE: CASE EVENT DATE: 20230108
